FAERS Safety Report 10041659 (Version 1)
Quarter: 2014Q1

REPORT INFORMATION
  Report Type: Spontaneous
  Country: CA (occurrence: CA)
  Receive Date: 20140327
  Receipt Date: 20140327
  Transmission Date: 20141002
  Serious: Yes (Other)
  Sender: FDA-Public Use
  Company Number: CA-B.I. PHARMACEUTICALS,INC./RIDGEFIELD-2014-BI-12316CN

PATIENT
  Age: 66 Year
  Sex: Male

DRUGS (2)
  1. SPIRIVA [Suspect]
     Indication: PRODUCT USED FOR UNKNOWN INDICATION
     Route: 065
  2. XOLAIR [Suspect]
     Indication: PRODUCT USED FOR UNKNOWN INDICATION
     Dosage: 72.8571 MG
     Route: 058

REACTIONS (6)
  - Breath sounds abnormal [Unknown]
  - Dyspepsia [Unknown]
  - Obstructive airways disorder [Unknown]
  - Pneumonia [Unknown]
  - Respiratory tract infection [Unknown]
  - Swelling [Unknown]
